FAERS Safety Report 5405502-7 (Version None)
Quarter: 2007Q3

REPORT INFORMATION
  Report Type: 
  Country: None (occurrence: None)
  Receive Date: 20070803
  Receipt Date: 20070722
  Transmission Date: 20080115
  Serious: Yes (Hospitalization, Other)
  Sender: FDA-Public Use
  Company Number: US-PFIZER INC-2007061234

PATIENT
  Sex: Female
  Weight: 54.09 kg

DRUGS (4)
  1. CHANTIX [Suspect]
     Indication: SMOKING CESSATION THERAPY
  2. DILANTIN KAPSEAL [Suspect]
     Indication: EPILEPSY
     Dosage: DAILY DOSE:500MG
  3. ALTACE [Concomitant]
     Indication: HYPERTENSION
  4. DIAZEPAM [Concomitant]

REACTIONS (5)
  - ANTICONVULSANT DRUG LEVEL INCREASED [None]
  - CONVULSION [None]
  - FALL [None]
  - NEOPLASM [None]
  - PAIN IN EXTREMITY [None]
